FAERS Safety Report 4327758-4 (Version None)
Quarter: 2004Q1

REPORT INFORMATION
  Report Type: 
  Country: None (occurrence: None)
  Receive Date: 20040325
  Receipt Date: 20040316
  Transmission Date: 20041129
  Serious: Yes (Death)
  Sender: FDA-Public Use
  Company Number: CAN-2004-0000122

PATIENT
  Age: 30 Year
  Sex: Male

DRUGS (1)
  1. OXYCONTIN [Suspect]
     Indication: DRUG ABUSER
     Dates: end: 20040101

REACTIONS (1)
  - SUDDEN DEATH [None]
